FAERS Safety Report 8983987 (Version 1)
Quarter: 2012Q4

REPORT INFORMATION
  Report Type: Spontaneous
  Country: JP (occurrence: None)
  Receive Date: 20121212
  Receipt Date: 20121212
  Transmission Date: 20130627
  Serious: Yes (Other)
  Sender: FDA-Public Use
  Company Number: AE-SPE-2012-025

PATIENT
  Age: 38 Year
  Sex: Female

DRUGS (3)
  1. CEFDITOREN PIVOXIL [Suspect]
     Indication: POSTOPERATIVE CARE
  2. CEFDITOREN PIVOXIL [Suspect]
     Indication: EMPIRIC TREATMENT
  3. FLOMOXEF SODIUM [Suspect]
     Indication: PROPHYLAXIS
     Dosage: 2 x 1g
     Route: 042

REACTIONS (4)
  - Pyrexia [None]
  - C-reactive protein increased [None]
  - Acute generalised exanthematous pustulosis [None]
  - Skin exfoliation [None]
